FAERS Safety Report 8120357-8 (Version None)
Quarter: 2012Q1

REPORT INFORMATION
  Report Type: 
  Country: None (occurrence: None)
  Receive Date: 20120207
  Receipt Date: 20110527
  Transmission Date: 20120608
  Serious: Yes (Hospitalization)
  Sender: FDA-Public Use
  Company Number: US-GLAXOSMITHKLINE-B0723745A

PATIENT
  Sex: Male
  Weight: 92.3 kg

DRUGS (4)
  1. GLUCOPHAGE [Concomitant]
  2. AVANDAMET [Suspect]
     Indication: DIABETES MELLITUS
     Route: 048
  3. AVANDIA [Suspect]
     Indication: DIABETES MELLITUS
     Route: 048
  4. ZOCOR [Concomitant]

REACTIONS (2)
  - CARDIOMYOPATHY [None]
  - INJURY [None]
